FAERS Safety Report 13676369 (Version 2)
Quarter: 2017Q3

REPORT INFORMATION
  Report Type: Report from Study
  Country: None (occurrence: US)
  Receive Date: 20170622
  Receipt Date: 20170804
  Transmission Date: 20171127
  Serious: Yes (Other)
  Sender: FDA-Public Use
  Company Number: US-ABBVIE-17K-163-2012313-00

PATIENT
  Sex: Female

DRUGS (1)
  1. HUMIRA [Suspect]
     Active Substance: ADALIMUMAB
     Indication: RHEUMATOID ARTHRITIS
     Route: 058

REACTIONS (10)
  - Hiatus hernia [Unknown]
  - Therapeutic response unexpected [Unknown]
  - Renal injury [Unknown]
  - Headache [Unknown]
  - Photopsia [Unknown]
  - Pre-existing condition improved [Unknown]
  - Ovarian cyst [Unknown]
  - Drug-induced liver injury [Unknown]
  - Cerebrovascular accident [Unknown]
  - Injection site pruritus [Unknown]
